FAERS Safety Report 8795249 (Version 1)
Quarter: 2012Q4

REPORT INFORMATION
  Report Type: 
  Country: IL (occurrence: IL)
  Receive Date: 20120918
  Receipt Date: 20120918
  Transmission Date: 20130627
  Serious: Yes (Other)
  Sender: FDA-Public Use
  Company Number: IL-ROCHE-1129482

PATIENT

DRUGS (1)
  1. AVASTIN [Suspect]
     Indication: MACULAR OEDEMA
     Route: 050

REACTIONS (3)
  - Punctate keratitis [Unknown]
  - Chest pain [Unknown]
  - Palpitations [Unknown]
